FAERS Safety Report 4635684-6 (Version None)
Quarter: 2005Q2

REPORT INFORMATION
  Report Type: 
  Country: None (occurrence: None)
  Receive Date: 20050414
  Receipt Date: 20050330
  Transmission Date: 20051028
  Serious: Yes (Other)
  Sender: FDA-Public Use
  Company Number: HQWYE646304APR05

PATIENT

DRUGS (5)
  1. EFFEXOR [Suspect]
     Dosage: ORAL
     Route: 048
  2. FLUOXETINE [Suspect]
     Dosage: ORAL
     Route: 048
  3. HALOPERIDOL [Suspect]
     Dosage: ORAL
     Route: 048
  4. HALOPERIDOL [Suspect]
     Dosage: ORAL
     Route: 048
  5. QUETIAPINE FUMARATE [Suspect]
     Dosage: ORAL
     Route: 048

REACTIONS (2)
  - HOMICIDAL IDEATION [None]
  - SUICIDAL IDEATION [None]
